FAERS Safety Report 12927654 (Version 1)
Quarter: 2016Q4

REPORT INFORMATION
  Report Type: Spontaneous
  Country: US (occurrence: US)
  Receive Date: 20161109
  Receipt Date: 20161109
  Transmission Date: 20170207
  Serious: Yes (Disabling)
  Sender: FDA-Public Use
  Company Number: None

PATIENT
  Age: 64 Year
  Sex: Female
  Weight: 69.75 kg

DRUGS (7)
  1. LEVOFLOXACIN 500MG [Suspect]
     Active Substance: LEVOFLOXACIN
     Indication: UPPER RESPIRATORY TRACT INFECTION
     Dosage: ?          QUANTITY:1 TABLET(S);?
     Route: 048
     Dates: start: 20160530, end: 20160531
  2. MULTIVITAMIN WITH MINERALS (CENTRUMSILVER EQUIV) [Concomitant]
  3. MALATONIN [Concomitant]
  4. VITAMIN K2 [Concomitant]
     Active Substance: MENAQUINONE 6
  5. LEVOFLOXACIN 500MG [Suspect]
     Active Substance: LEVOFLOXACIN
     Indication: PNEUMONIA
     Dosage: ?          QUANTITY:1 TABLET(S);?
     Route: 048
     Dates: start: 20160530, end: 20160531
  6. VITAMIN E [Concomitant]
     Active Substance: .ALPHA.-TOCOPHEROL
  7. CALCIUM WITH VITAMIN D3 [Concomitant]
     Active Substance: CALCIUM CARBONATE\CHOLECALCIFEROL

REACTIONS (8)
  - Hypoaesthesia [None]
  - Muscle spasms [None]
  - Skin burning sensation [None]
  - Muscle twitching [None]
  - Limb discomfort [None]
  - Tendonitis [None]
  - Middle insomnia [None]
  - Pain in extremity [None]

NARRATIVE: CASE EVENT DATE: 20160530
